FAERS Safety Report 13515208 (Version 1)
Quarter: 2017Q2

REPORT INFORMATION
  Report Type: Spontaneous
  Country: CA (occurrence: CA)
  Receive Date: 20170504
  Receipt Date: 20170504
  Transmission Date: 20170830
  Serious: Yes (Other)
  Sender: FDA-Public Use
  Company Number: CA-GILEAD-2017-0270615

PATIENT
  Age: 52 Year
  Sex: Male

DRUGS (27)
  1. ISENTRESS [Suspect]
     Active Substance: RALTEGRAVIR POTASSIUM
     Indication: HIV INFECTION
     Route: 065
  2. NELFINAVIR MESILATE [Suspect]
     Active Substance: NELFINAVIR MESYLATE
     Indication: HIV INFECTION
     Route: 065
  3. TENOFOVIR DISOPROXIL FUMARATE. [Suspect]
     Active Substance: TENOFOVIR DISOPROXIL FUMARATE
     Indication: HIV INFECTION
     Route: 048
  4. DARUNAVIR [Suspect]
     Active Substance: DARUNAVIR
     Indication: HIV INFECTION
     Route: 065
  5. LOPINAVIR [Suspect]
     Active Substance: LOPINAVIR
     Indication: HIV INFECTION
     Route: 065
  6. LOPINAVIR/RITONAVIR RANBAXY [Suspect]
     Active Substance: LOPINAVIR\RITONAVIR
     Indication: HIV INFECTION
     Route: 065
  7. RITONAVIR. [Suspect]
     Active Substance: RITONAVIR
     Indication: HIV INFECTION
     Route: 065
  8. VIDEX EC [Suspect]
     Active Substance: DIDANOSINE
     Indication: HIV INFECTION
     Route: 048
  9. DELAVIRDINE [Suspect]
     Active Substance: DELAVIRDINE
     Indication: HIV INFECTION
     Route: 065
  10. ETRAVIRINE [Suspect]
     Active Substance: ETRAVIRINE
     Indication: HIV INFECTION
     Route: 048
  11. NEVIRAPINE. [Suspect]
     Active Substance: NEVIRAPINE
     Indication: HIV INFECTION
     Route: 065
  12. RALTEGRAVIR. [Suspect]
     Active Substance: RALTEGRAVIR
     Indication: HIV INFECTION
     Dosage: 400 MG, UNK
     Route: 048
  13. SAQUINAVIR [Suspect]
     Active Substance: SAQUINAVIR
     Indication: HIV INFECTION
     Route: 048
  14. NORVIR [Suspect]
     Active Substance: RITONAVIR
     Indication: HIV INFECTION
     Route: 065
  15. ABACAVIR SULFATE. [Suspect]
     Active Substance: ABACAVIR SULFATE
     Indication: HIV INFECTION
     Route: 065
  16. DIDANOSINE. [Suspect]
     Active Substance: DIDANOSINE
     Indication: HIV INFECTION
     Route: 065
  17. INDINAVIR SULFATE [Suspect]
     Active Substance: INDINAVIR SULFATE
     Indication: HIV INFECTION
     Route: 048
  18. INTELENCE [Suspect]
     Active Substance: ETRAVIRINE
     Indication: HIV INFECTION
     Route: 048
  19. ZIDOVUDINE. [Suspect]
     Active Substance: ZIDOVUDINE
     Indication: HIV INFECTION
     Route: 048
  20. SUSTIVA [Suspect]
     Active Substance: EFAVIRENZ
     Indication: HIV INFECTION
     Route: 048
  21. LAMIVUDINE. [Suspect]
     Active Substance: LAMIVUDINE
     Indication: HIV INFECTION
     Route: 065
  22. ZERIT [Suspect]
     Active Substance: STAVUDINE
     Indication: HIV INFECTION
     Route: 065
  23. VIREAD [Suspect]
     Active Substance: TENOFOVIR DISOPROXIL FUMARATE
     Indication: HIV INFECTION
     Route: 048
  24. EFAVIRENZ [Suspect]
     Active Substance: EFAVIRENZ
     Indication: HIV INFECTION
     Route: 048
  25. DELAVIRDINE MESYLATE [Suspect]
     Active Substance: DELAVIRDINE MESYLATE
     Indication: HIV INFECTION
     Route: 065
  26. ENFUVIRTIDE [Suspect]
     Active Substance: ENFUVIRTIDE
     Indication: HIV INFECTION
     Route: 058
  27. KALETRA [Suspect]
     Active Substance: LOPINAVIR\RITONAVIR
     Indication: HIV INFECTION
     Route: 065

REACTIONS (5)
  - Eyelid ptosis [Recovering/Resolving]
  - Lipodystrophy acquired [Recovering/Resolving]
  - Diplopia [Recovering/Resolving]
  - Mitochondrial toxicity [Recovering/Resolving]
  - Progressive external ophthalmoplegia [Recovering/Resolving]
